FAERS Safety Report 9805292 (Version 3)
Quarter: 2014Q2

REPORT INFORMATION
  Report Type: Spontaneous
  Country: IL (occurrence: IL)
  Receive Date: 20140109
  Receipt Date: 20140627
  Transmission Date: 20141212
  Serious: Yes (Hospitalization, Other)
  Sender: FDA-Public Use
  Company Number: IL-009507513-1401ISR000984

PATIENT
  Age: 84 Year
  Sex: Female
  Weight: 80 kg

DRUGS (2)
  1. BRIDION [Suspect]
     Dosage: UNK
  2. ROCURONIUM BROMIDE [Suspect]
     Indication: NEUROMUSCULAR BLOCKING THERAPY
     Dosage: UNK
     Dates: start: 20131231, end: 20131231

REACTIONS (5)
  - Endotracheal intubation [Recovered/Resolved]
  - Dyspnoea [Recovering/Resolving]
  - Urticaria [Recovering/Resolving]
  - Anaphylactic shock [Recovered/Resolved]
  - Blood pressure decreased [Recovering/Resolving]
